FAERS Safety Report 24748555 (Version 1)
Quarter: 2024Q4

REPORT INFORMATION
  Report Type: Spontaneous
  Country: US (occurrence: US)
  Receive Date: 20241218
  Receipt Date: 20241218
  Transmission Date: 20250115
  Serious: Yes (Other)
  Sender: VANDA PHARMACEUTICALS
  Company Number: US-VANDA PHARMACEUTICALS, INC-2024ILOUS001993

PATIENT
  Sex: Male

DRUGS (2)
  1. FANAPT [Suspect]
     Active Substance: ILOPERIDONE
     Indication: Schizophrenia
     Dosage: 6 MILLIGRAM, BID FOR 3-4 WEEKS (TITRATED UP)
     Route: 048
     Dates: start: 202410
  2. FANAPT [Suspect]
     Active Substance: ILOPERIDONE
     Dosage: 8 MILLIGRAM, BID
     Route: 048
     Dates: start: 202411

REACTIONS (1)
  - Loss of consciousness [Recovered/Resolved]
